FAERS Safety Report 8249278-7 (Version None)
Quarter: 2012Q1

REPORT INFORMATION
  Report Type: 
  Country: None (occurrence: None)
  Receive Date: 20120327
  Receipt Date: 20120312
  Transmission Date: 20120608
  Serious: Yes (Other)
  Sender: FDA-Public Use
  Company Number: US-1190454

PATIENT
  Age: 97 Year
  Sex: Female
  Weight: 58.9676 kg

DRUGS (5)
  1. BSS [Suspect]
     Indication: INTRAOCULAR LENS IMPLANT
     Dosage: (INTRAOCULAR)
     Dates: start: 20120124, end: 20120124
  2. VIGAMOX [Suspect]
     Indication: PREOPERATIVE CARE
     Dosage: (OPHTHALMIC)
     Route: 047
     Dates: start: 20120121, end: 20120124
  3. NEVANAC [Suspect]
     Indication: PREOPERATIVE CARE
     Dosage: (OPHTHALMIC)
     Route: 047
     Dates: start: 20120124, end: 20120124
  4. BETADINE [Suspect]
     Indication: INTRAOCULAR LENS IMPLANT
     Dosage: (OPHTHALMIC)
     Route: 047
     Dates: start: 20120124, end: 20120124
  5. EPINEPHRINE [Concomitant]

REACTIONS (3)
  - TREATMENT NONCOMPLIANCE [None]
  - TOXIC ANTERIOR SEGMENT SYNDROME [None]
  - MEDICATION ERROR [None]
